FAERS Safety Report 10374941 (Version 1)
Quarter: 2014Q3

REPORT INFORMATION
  Report Type: Spontaneous
  Country: FR (occurrence: FR)
  Receive Date: 20140811
  Receipt Date: 20140811
  Transmission Date: 20150326
  Serious: Yes (Hospitalization)
  Sender: FDA-Public Use
  Company Number: FR-JNJFOC-20140808427

PATIENT
  Age: 65 Year
  Sex: Female
  Weight: 35 kg

DRUGS (10)
  1. CONTRAMAL LP [Interacting]
     Active Substance: TRAMADOL HYDROCHLORIDE
     Indication: PAIN
     Route: 048
     Dates: start: 20140627
  2. LEPTICUR [Concomitant]
     Active Substance: TROPATEPINE HYDROCHLORIDE
     Indication: EXTRAPYRAMIDAL DISORDER
     Route: 048
     Dates: start: 20140710, end: 20140718
  3. SERTRALINE [Interacting]
     Active Substance: SERTRALINE HYDROCHLORIDE
     Indication: DEPRESSION
     Route: 048
     Dates: start: 20140618, end: 20140718
  4. DUROGESIC [Concomitant]
     Active Substance: FENTANYL
     Indication: PRODUCT USED FOR UNKNOWN INDICATION
     Route: 042
     Dates: start: 20140605
  5. TERCIAN [Concomitant]
     Active Substance: CYAMEMAZINE
     Indication: PRODUCT USED FOR UNKNOWN INDICATION
     Route: 065
     Dates: start: 20140612, end: 20140619
  6. HALDOL [Suspect]
     Active Substance: HALOPERIDOL
     Indication: PRODUCT USED FOR UNKNOWN INDICATION
     Route: 048
     Dates: start: 20140627, end: 20140718
  7. COLIMYCIN [Concomitant]
     Indication: PRODUCT USED FOR UNKNOWN INDICATION
     Route: 065
     Dates: start: 20140605
  8. BRICANYL [Concomitant]
     Active Substance: TERBUTALINE SULFATE
     Indication: PRODUCT USED FOR UNKNOWN INDICATION
     Route: 065
     Dates: start: 20140605
  9. OXYGEN. [Concomitant]
     Active Substance: OXYGEN
     Indication: PRODUCT USED FOR UNKNOWN INDICATION
     Route: 055
     Dates: start: 20140605
  10. TEMESTA [Concomitant]
     Active Substance: LORAZEPAM
     Indication: PRODUCT USED FOR UNKNOWN INDICATION
     Route: 048
     Dates: start: 20140605

REACTIONS (8)
  - Diarrhoea [Not Recovered/Not Resolved]
  - Muscle rigidity [Not Recovered/Not Resolved]
  - Somnolence [Not Recovered/Not Resolved]
  - Tachycardia [Not Recovered/Not Resolved]
  - Hyperhidrosis [Not Recovered/Not Resolved]
  - Hypertension [Not Recovered/Not Resolved]
  - Drug interaction [Not Recovered/Not Resolved]
  - Tremor [Not Recovered/Not Resolved]

NARRATIVE: CASE EVENT DATE: 20140717
